FAERS Safety Report 13467954 (Version 1)
Quarter: 2017Q2

REPORT INFORMATION
  Report Type: Report from Study
  Country: US (occurrence: US)
  Receive Date: 20170421
  Receipt Date: 20170421
  Transmission Date: 20170830
  Serious: Yes (Other)
  Sender: FDA-Public Use
  Company Number: US-JNJFOC-20170307570

PATIENT
  Sex: Male

DRUGS (20)
  1. TAMSULOSIN [Concomitant]
     Active Substance: TAMSULOSIN
  2. IMBRUVICA [Suspect]
     Active Substance: IBRUTINIB
     Indication: NEOPLASM MALIGNANT
     Route: 048
     Dates: start: 20160520, end: 20170316
  3. LEVETIRACETAM. [Concomitant]
     Active Substance: LEVETIRACETAM
  4. CLONAZEPAM. [Concomitant]
     Active Substance: CLONAZEPAM
  5. AMOXICILLIN CLAVULANIC ACID [Concomitant]
     Active Substance: AMOXICILLIN\CLAVULANIC ACID
  6. LEVOTHYROXINE. [Concomitant]
     Active Substance: LEVOTHYROXINE
  7. CLOTRIMAZOLE AND BETAMETHASONE [Concomitant]
     Active Substance: BETAMETHASONE\CLOTRIMAZOLE
  8. SITAGLIPTIN [Concomitant]
     Active Substance: SITAGLIPTIN
  9. IMBRUVICA [Suspect]
     Active Substance: IBRUTINIB
     Indication: B-CELL SMALL LYMPHOCYTIC LYMPHOMA
     Route: 048
     Dates: start: 201405
  10. GLIMEPIRIDE. [Concomitant]
     Active Substance: GLIMEPIRIDE
  11. IMBRUVICA [Suspect]
     Active Substance: IBRUTINIB
     Indication: B-CELL SMALL LYMPHOCYTIC LYMPHOMA
     Route: 048
     Dates: start: 20160520, end: 20170316
  12. IMBRUVICA [Suspect]
     Active Substance: IBRUTINIB
     Indication: CHRONIC LYMPHOCYTIC LEUKAEMIA
     Route: 048
     Dates: start: 201405
  13. IMBRUVICA [Suspect]
     Active Substance: IBRUTINIB
     Indication: NEOPLASM MALIGNANT
     Route: 048
     Dates: start: 201405
  14. PIOGLITAZONE. [Concomitant]
     Active Substance: PIOGLITAZONE
  15. ANASTROZOLE. [Concomitant]
     Active Substance: ANASTROZOLE
  16. PAROXETINE. [Concomitant]
     Active Substance: PAROXETINE
  17. LABETALOL [Concomitant]
     Active Substance: LABETALOL\LABETALOL HYDROCHLORIDE
  18. IMBRUVICA [Suspect]
     Active Substance: IBRUTINIB
     Indication: CHRONIC LYMPHOCYTIC LEUKAEMIA
     Route: 048
     Dates: start: 20160520, end: 20170316
  19. ALLOPURINOL. [Concomitant]
     Active Substance: ALLOPURINOL
  20. TESTOSTERONE. [Concomitant]
     Active Substance: TESTOSTERONE

REACTIONS (26)
  - Lung infiltration [Recovered/Resolved]
  - Rash maculo-papular [Unknown]
  - Pneumonia [Unknown]
  - Pollakiuria [Unknown]
  - Amnesia [Unknown]
  - Muscular weakness [Unknown]
  - Rash [Recovering/Resolving]
  - Supraventricular extrasystoles [Unknown]
  - Urine flow decreased [Unknown]
  - Constipation [Unknown]
  - Pneumonitis [Unknown]
  - Spinal column stenosis [Unknown]
  - Diarrhoea [Recovering/Resolving]
  - Skin discolouration [Unknown]
  - Dyspnoea [Unknown]
  - Fatigue [Unknown]
  - Haemorrhagic diathesis [Unknown]
  - Contusion [Recovering/Resolving]
  - Cellulitis [Unknown]
  - Cough [Recovering/Resolving]
  - Diabetic foot [Not Recovered/Not Resolved]
  - Atrioventricular block first degree [Unknown]
  - Obstructive uropathy [Unknown]
  - Impaired healing [Unknown]
  - Increased tendency to bruise [Unknown]
  - Back pain [Recovered/Resolved]
